FAERS Safety Report 10578056 (Version 2)
Quarter: 2014Q4

REPORT INFORMATION
  Report Type: Report from Study
  Country: DE (occurrence: DE)
  Receive Date: 20141112
  Receipt Date: 20141112
  Transmission Date: 20150529
  Serious: Yes (Hospitalization)
  Sender: FDA-Public Use
  Company Number: DE-IPSEN BIOPHARMACEUTICALS, INC.-23020080208

PATIENT
  Age: 9 Year
  Sex: Female
  Weight: 21 kg

DRUGS (3)
  1. INCRELEX [Suspect]
     Active Substance: MECASERMIN
     Indication: INSULIN-LIKE GROWTH FACTOR DECREASED
     Route: 058
     Dates: start: 20070925
  2. INCRELEX [Suspect]
     Active Substance: MECASERMIN
     Route: 058
     Dates: end: 20071211
  3. AMOXICILLIN. [Concomitant]
     Active Substance: AMOXICILLIN
     Indication: UPPER RESPIRATORY TRACT INFECTION
     Dosage: UNKNOWN
     Dates: start: 20071208, end: 20071211

REACTIONS (6)
  - Lip oedema [Recovered/Resolved]
  - Injection site pruritus [Recovered/Resolved]
  - Paraesthesia [Recovered/Resolved]
  - Injection site induration [Recovered/Resolved]
  - Eyelid oedema [Recovered/Resolved]
  - Hypoglycaemia [Recovered/Resolved]

NARRATIVE: CASE EVENT DATE: 20071211
